FAERS Safety Report 22303788 (Version 2)
Quarter: 2023Q4

REPORT INFORMATION
  Report Type: Spontaneous
  Country: IN (occurrence: IN)
  Receive Date: 20230510
  Receipt Date: 20231006
  Transmission Date: 20240110
  Serious: Yes (Other)
  Sender: FDA-Public Use
  Company Number: IN-SUN PHARMACEUTICAL INDUSTRIES LTD-2023R1-387342

PATIENT
  Age: 65 Year
  Sex: Male

DRUGS (3)
  1. TRIAMCINOLONE [Suspect]
     Active Substance: TRIAMCINOLONE
     Indication: Cystoid macular oedema
     Dosage: UNK (IN RIGHT EYE) (4 MG/ 0.1 ML )
  2. MOXIFLOXACIN [Concomitant]
     Active Substance: MOXIFLOXACIN
     Indication: Cystoid macular oedema
     Dosage: UNK
     Route: 061
  3. NEPAFENAC [Concomitant]
     Active Substance: NEPAFENAC
     Indication: Cystoid macular oedema
     Dosage: UNK
     Route: 061

REACTIONS (1)
  - Pseudoendophthalmitis [Recovering/Resolving]
